FAERS Safety Report 9937381 (Version 6)
Quarter: 2014Q2

REPORT INFORMATION
  Report Type: Report from Study
  Country: CA (occurrence: CA)
  Receive Date: 20140303
  Receipt Date: 20140429
  Transmission Date: 20141212
  Serious: Yes (Death, Other)
  Sender: FDA-Public Use
  Company Number: CA-ROCHE-1345187

PATIENT
  Sex: Female

DRUGS (9)
  1. AVASTIN [Suspect]
     Indication: GLIOBLASTOMA
     Route: 042
     Dates: start: 20140123, end: 20140220
  2. DECADRON [Suspect]
     Indication: PRODUCT USED FOR UNKNOWN INDICATION
     Route: 065
  3. ZOPICLONE [Concomitant]
     Route: 065
  4. DEXAMETHASONE [Concomitant]
     Route: 065
  5. CLONAZEPAM [Concomitant]
     Route: 065
  6. NEXIUM [Concomitant]
     Route: 065
  7. CITALOPRAM [Concomitant]
     Route: 065
  8. OMEGA 3 [Concomitant]
  9. SENNOSIDE [Concomitant]
     Route: 065

REACTIONS (11)
  - Disease progression [Fatal]
  - Drug ineffective [Fatal]
  - Vocal cord disorder [Unknown]
  - Dyspnoea [Not Recovered/Not Resolved]
  - Red blood cell count decreased [Unknown]
  - Mean cell volume increased [Unknown]
  - Mean cell haemoglobin increased [Unknown]
  - Neutrophil count increased [Unknown]
  - Monocyte count increased [Unknown]
  - Lymphocyte count decreased [Unknown]
  - Lymphocyte count decreased [Unknown]
